FAERS Safety Report 18476191 (Version 5)
Quarter: 2021Q2

REPORT INFORMATION
  Report Type: Report from Study
  Country: BR (occurrence: BR)
  Receive Date: 20201106
  Receipt Date: 20210503
  Transmission Date: 20210717
  Serious: Yes (Death, Hospitalization, Other)
  Sender: FDA-Public Use
  Company Number: BR-GILEAD-2020-0489862

PATIENT
  Age: 54 Year
  Sex: Male
  Weight: 72 kg

DRUGS (38)
  1. REMDESIVIR. [Suspect]
     Active Substance: REMDESIVIR
     Indication: COVID-19 PNEUMONIA
     Dosage: 100 ML, BLINDED REMDESIVIR
     Route: 042
     Dates: start: 20200722
  2. HEPARIN [Concomitant]
     Active Substance: HEPARIN SODIUM
     Indication: THROMBOSIS PROPHYLAXIS
     Dosage: 1400 IU
     Dates: start: 20200718
  3. VASOPRESSINE [Concomitant]
     Active Substance: VASOPRESSIN
     Indication: SEPTIC SHOCK
     Dates: start: 20200709
  4. LINEZOLID. [Concomitant]
     Active Substance: LINEZOLID
     Indication: PNEUMONIA
     Dates: start: 20200703
  5. METHYLPREDNISOLONE. [Concomitant]
     Active Substance: METHYLPREDNISOLONE
     Indication: COVID-19
     Dates: start: 20200716
  6. OMEPRAZOLE. [Concomitant]
     Active Substance: OMEPRAZOLE
     Indication: GASTROINTESTINAL DISORDER PROPHYLAXIS
     Dosage: 40 MG
     Dates: start: 20200702
  7. OXYGEN. [Concomitant]
     Active Substance: OXYGEN
     Dosage: DOSE: 7
     Dates: start: 20200725
  8. REMDESIVIR. [Suspect]
     Active Substance: REMDESIVIR
     Dosage: MOST RECENT DOSE OF BLINDED RDV PRIOR TO AE ONSET AT 12:08
     Route: 042
     Dates: start: 20200726
  9. ASA [Concomitant]
     Active Substance: ASPIRIN
     Indication: ACUTE MYOCARDIAL INFARCTION
     Dates: start: 20200702
  10. DIPYRONE [Concomitant]
     Active Substance: DIPYRONE
     Indication: ANALGESIC THERAPY
     Dosage: 2 G
     Dates: start: 20200708
  11. AZITHROMICIN [Concomitant]
     Active Substance: AZITHROMYCIN
     Indication: COVID-19
     Dosage: 500 MG
     Dates: start: 20200716, end: 20200724
  12. PIPERACILIN/TAZOBACTAM [Concomitant]
     Active Substance: PIPERACILLIN SODIUM\TAZOBACTAM SODIUM
     Dosage: 4.5 G
     Dates: start: 20200712
  13. NORADRENALINE [NOREPINEPHRINE] [Concomitant]
     Active Substance: NOREPINEPHRINE
     Indication: SEPTIC SHOCK
     Dosage: 5 L/MIN
     Route: 055
     Dates: start: 20200722
  14. OXYGEN. [Concomitant]
     Active Substance: OXYGEN
     Dosage: 2 L/MIN
     Route: 055
     Dates: start: 20200723
  15. OXYGEN. [Concomitant]
     Active Substance: OXYGEN
     Dosage: 2 L/MIN
     Route: 055
     Dates: start: 20200728
  16. FUROSEMIDE. [Concomitant]
     Active Substance: FUROSEMIDE
  17. VANCOMYCIN [Concomitant]
     Active Substance: VANCOMYCIN
     Dosage: 1 G
     Dates: start: 20200714
  18. MIDAZOLAM. [Concomitant]
     Active Substance: MIDAZOLAM
     Indication: SEDATION
     Dates: start: 20200717, end: 20200722
  19. OXYGEN. [Concomitant]
     Active Substance: OXYGEN
     Route: 007
     Dates: start: 20200722
  20. OXYGEN. [Concomitant]
     Active Substance: OXYGEN
     Dosage: 2 L/MIN
     Route: 055
     Dates: start: 20200730
  21. OXYGEN. [Concomitant]
     Active Substance: OXYGEN
     Dosage: 15 L/MIN
     Route: 055
     Dates: start: 20200724
  22. REMDESIVIR. [Suspect]
     Active Substance: REMDESIVIR
     Dosage: 200 MG, LOADING DOSE
     Route: 042
     Dates: start: 20200722
  23. HYDROCHLOROTHIAZIDE. [Concomitant]
     Active Substance: HYDROCHLOROTHIAZIDE
     Dosage: 50 MG
     Dates: start: 20200712
  24. FENTANYL. [Concomitant]
     Active Substance: FENTANYL
     Indication: SEDATION
     Dates: start: 20200717, end: 20200722
  25. OXYGEN. [Concomitant]
     Active Substance: OXYGEN
     Route: 007
     Dates: start: 20200722
  26. OXYGEN. [Concomitant]
     Active Substance: OXYGEN
     Dosage: 2 L/MIN
     Route: 055
     Dates: start: 20200730
  27. REMDESIVIR. [Suspect]
     Active Substance: REMDESIVIR
     Dosage: 100 ML, MOST RECENT DOSE OF BLINDED RDV PRIOR TO AE ONSET AT 12:58
     Route: 042
     Dates: start: 20200731
  28. REMDESIVIR. [Suspect]
     Active Substance: REMDESIVIR
     Dosage: 100 MG, QD, MAINTENANCE DOSE OF RDV FROM DAYS 2 TO 10
     Route: 042
  29. TOCILIZUMAB. [Suspect]
     Active Substance: TOCILIZUMAB
     Indication: COVID-19 PNEUMONIA
     Dosage: 8 MG/KG, ONCE,MOST RECENT DOSE OF BLINDED TOCI PRIOR TO AE ONSET ON 22/JUL/2020 AT 13:55
     Route: 042
     Dates: start: 20200722
  30. DOBUTAMINE [Concomitant]
     Active Substance: DOBUTAMINE HYDROCHLORIDE
     Indication: SEPTIC SHOCK
     Dates: start: 20200708
  31. OXYGEN. [Concomitant]
     Active Substance: OXYGEN
     Dosage: 2 L/MIN
     Route: 055
     Dates: start: 20200729
  32. KETAMINE [Concomitant]
     Active Substance: KETAMINE
     Indication: SEDATION
     Dates: start: 20200717, end: 20200722
  33. GRANULOKINE [Concomitant]
     Active Substance: FILGRASTIM
     Indication: BICYTOPENIA
     Dates: start: 20200730
  34. MEROPENEM. [Concomitant]
     Active Substance: MEROPENEM
     Indication: PNEUMONIA
     Dates: start: 20200703
  35. OXYGEN. [Concomitant]
     Active Substance: OXYGEN
     Route: 007
     Dates: start: 20200721
  36. OXYGEN. [Concomitant]
     Active Substance: OXYGEN
     Dosage: 15 L/MIN
     Route: 055
     Dates: start: 20200724
  37. OXYGEN. [Concomitant]
     Active Substance: OXYGEN
     Dosage: 35 L/MIN
     Route: 055
     Dates: start: 20200722
  38. OXYGEN. [Concomitant]
     Active Substance: OXYGEN
     Dosage: DOSE: 2
     Dates: start: 20200727

REACTIONS (5)
  - Septic shock [Fatal]
  - Fungaemia [Not Recovered/Not Resolved]
  - Pneumonia [Not Recovered/Not Resolved]
  - Bicytopenia [Recovered/Resolved]
  - Acute kidney injury [Recovered/Resolved]

NARRATIVE: CASE EVENT DATE: 20200727
